FAERS Safety Report 4676251-8 (Version None)
Quarter: 2005Q2

REPORT INFORMATION
  Report Type: 
  Country: None (occurrence: None)
  Receive Date: 20050527
  Receipt Date: 20050207
  Transmission Date: 20051028
  Serious: No
  Sender: FDA-Public Use
  Company Number: US-GLAXOSMITHKLINE-A0544221A

PATIENT
  Age: 47 Year
  Sex: Female

DRUGS (3)
  1. WELLBUTRIN XL [Suspect]
     Indication: DEPRESSION
     Dosage: 300MG PER DAY
     Route: 048
     Dates: start: 20041110
  2. DITROPAN XL [Concomitant]
     Dosage: 5MG PER DAY
  3. AZATHIOPRINE [Concomitant]
     Dosage: 75MG PER DAY

REACTIONS (2)
  - RASH [None]
  - THERAPEUTIC RESPONSE UNEXPECTED [None]
